FAERS Safety Report 8594628 (Version 2)
Quarter: 2013Q4

REPORT INFORMATION
  Report Type: Spontaneous
  Country: FR (occurrence: FR)
  Receive Date: 20120604
  Receipt Date: 20131226
  Transmission Date: 20140711
  Serious: Yes (Other)
  Sender: FDA-Public Use
  Company Number: FR-BRISTOL-MYERS SQUIBB COMPANY-16639593

PATIENT
  Age: 75 Year
  Sex: Female
  Weight: 65 kg

DRUGS (4)
  1. GLUCOPHAGE TABS 850 MG [Suspect]
     Indication: TYPE 2 DIABETES MELLITUS
     Route: 048
     Dates: start: 2005
  2. REMICADE [Suspect]
     Indication: RHEUMATOID ARTHRITIS
     Dosage: DOSAGE STRENGTH:100MG,?POWDER OF INJECTION
     Route: 042
     Dates: start: 200604, end: 20120227
  3. CELEBREX [Suspect]
     Dosage: DOSAGE STRENGTH: 200MG , CAPSULE
     Route: 048
     Dates: start: 200604
  4. METHOTREXATE [Suspect]
     Indication: RHEUMATOID ARTHRITIS
     Route: 048
     Dates: start: 200604

REACTIONS (1)
  - Congestive cardiomyopathy [Recovered/Resolved with Sequelae]
